FAERS Safety Report 24698303 (Version 1)
Quarter: 2024Q4

REPORT INFORMATION
  Report Type: Spontaneous
  Country: US (occurrence: US)
  Receive Date: 20241204
  Receipt Date: 20241204
  Transmission Date: 20250115
  Serious: No
  Sender: Jubilant Radiopharma
  Company Number: US-JUBILANT RADIOPHARMA-2024US000228

PATIENT
  Sex: Female

DRUGS (1)
  1. DRAXIMAGE DTPA [Suspect]
     Active Substance: TECHNETIUM TC-99M PENTETATE
     Indication: Ventilation/perfusion scan
     Dosage: 30.7
     Dates: start: 20241101, end: 20241101

REACTIONS (2)
  - Drug ineffective [Recovered/Resolved]
  - Product administration error [Recovered/Resolved]

NARRATIVE: CASE EVENT DATE: 20241101
